FAERS Safety Report 17367842 (Version 1)
Quarter: 2020Q1

REPORT INFORMATION
  Report Type: Spontaneous
  Country: US (occurrence: US)
  Receive Date: 20200204
  Receipt Date: 20200204
  Transmission Date: 20200409
  Serious: No
  Sender: FDA-Public Use
  Company Number: US-PERRIGO-19US013487

PATIENT
  Age: 89 Year
  Sex: Female
  Weight: 63.04 kg

DRUGS (3)
  1. ESTRADIOL. [Suspect]
     Active Substance: ESTRADIOL
     Indication: PRODUCT USED FOR UNKNOWN INDICATION
     Dosage: 1 GRAM, QD, THEN 1/2 GRAM TWICE WEEKLY AFTER 3 WEEKS
     Route: 067
     Dates: start: 20191024
  2. NITROFURANTOIN. [Concomitant]
     Active Substance: NITROFURANTOIN
     Indication: URINARY TRACT INFECTION
     Dosage: 1 CAPSULE, BID
     Route: 065
  3. ANTIHYPERTENSIVES [Concomitant]
     Active Substance: UNSPECIFIED INGREDIENT
     Indication: PRODUCT USED FOR UNKNOWN INDICATION
     Dosage: BID
     Route: 065

REACTIONS (2)
  - Underdose [Not Recovered/Not Resolved]
  - Breast pain [Not Recovered/Not Resolved]

NARRATIVE: CASE EVENT DATE: 20191024
